FAERS Safety Report 5824515-4 (Version None)
Quarter: 2008Q3

REPORT INFORMATION
  Report Type: 
  Country: None (occurrence: None)
  Receive Date: 20080728
  Receipt Date: 20080715
  Transmission Date: 20090109
  Serious: Yes (Hospitalization)
  Sender: FDA-Public Use
  Company Number: TW-JNJFOC-20080706243

PATIENT
  Sex: Male
  Weight: 76.2 kg

DRUGS (3)
  1. RISPERDAL [Suspect]
     Indication: DRUG USE FOR UNKNOWN INDICATION
     Dosage: DOSAGE FREQUENCY IS SQN
     Route: 048
  2. DEPAKOTE [Suspect]
     Indication: DRUG USE FOR UNKNOWN INDICATION
     Route: 048
  3. ANXIDIN [Suspect]
     Indication: DRUG USE FOR UNKNOWN INDICATION
     Dosage: DOSAGE FREQUENCY IS SQN
     Route: 048

REACTIONS (5)
  - DEPRESSED MOOD [None]
  - EMOTIONAL DISORDER [None]
  - HEADACHE [None]
  - SLEEP DISORDER [None]
  - VOMITING [None]
